FAERS Safety Report 8015342-0 (Version None)
Quarter: 2011Q4

REPORT INFORMATION
  Report Type: 
  Country: None (occurrence: None)
  Receive Date: 20111223
  Receipt Date: 20111220
  Transmission Date: 20120403
  Serious: Yes (Hospitalization)
  Sender: FDA-Public Use
  Company Number: 2011ST000541

PATIENT
  Age: 27 Year
  Sex: Female

DRUGS (8)
  1. ETOPOSIDE [Suspect]
     Indication: HODGKIN'S DISEASE
     Dosage: 100 MG/M**2, IV
     Route: 042
     Dates: start: 20110101, end: 20110908
  2. CYCLOPHOSPHAMIDE [Suspect]
     Indication: HODGKIN'S DISEASE
     Dosage: 650 MG/M**2, IV
     Route: 042
     Dates: start: 20110101, end: 20110906
  3. MATULANE [Suspect]
     Indication: HODGKIN'S DISEASE
     Dosage: 100 MG/M**2, PO
     Route: 048
     Dates: start: 20110101, end: 20110912
  4. PREDNISONE TAB [Suspect]
     Indication: HODGKIN'S DISEASE
     Dosage: 40 MG/M**2, PO
     Route: 048
     Dates: start: 20110101, end: 20110919
  5. COTRIM DS [Concomitant]
  6. RITUXIMAB [Suspect]
     Indication: HODGKIN'S DISEASE
     Dosage: 375 MG/M**2, IV
     Route: 042
     Dates: start: 20110101, end: 20110905
  7. DOXORUBICIN HCL [Suspect]
     Indication: HODGKIN'S DISEASE
     Dosage: 25 MG/M**2, IV
     Route: 042
     Dates: start: 20110101, end: 20110906
  8. BLEOMYCIN SULFATE [Suspect]
     Indication: HODGKIN'S DISEASE
     Dosage: 10 MG/M**2, IV
     Route: 042
     Dates: start: 20110101, end: 20110913

REACTIONS (1)
  - SUPRAVENTRICULAR TACHYCARDIA [None]
